FAERS Safety Report 4792393-0 (Version None)
Quarter: 2005Q4

REPORT INFORMATION
  Report Type: 
  Country: None (occurrence: None)
  Receive Date: 20051010
  Receipt Date: 20050808
  Transmission Date: 20060501
  Serious: Yes (Hospitalization)
  Sender: FDA-Public Use
  Company Number: 2005AP04351

PATIENT
  Age: 24616 Day
  Sex: Male
  Weight: 62 kg

DRUGS (14)
  1. IRESSA [Suspect]
     Indication: LUNG ADENOCARCINOMA
     Route: 048
     Dates: start: 20040407, end: 20041026
  2. IRESSA [Suspect]
     Route: 048
     Dates: start: 20041213, end: 20050426
  3. IRESSA [Suspect]
     Route: 048
     Dates: start: 20050523, end: 20050720
  4. MUCODYNE [Concomitant]
     Indication: SPUTUM RETENTION
     Route: 048
     Dates: start: 20021024, end: 20050720
  5. ANTEBATE [Concomitant]
     Indication: RASH
     Route: 061
     Dates: start: 20021202, end: 20050720
  6. THEO-DUR [Concomitant]
     Indication: ASTHMA
     Dates: start: 20031110, end: 20050720
  7. DALACIN [Concomitant]
     Indication: RASH
     Dates: start: 20040421, end: 20050720
  8. DEPAKENE [Concomitant]
     Indication: CONVULSION PROPHYLAXIS
     Route: 048
     Dates: start: 20050425, end: 20050523
  9. VOLTAREN [Concomitant]
     Indication: CHEST PAIN
     Route: 048
     Dates: start: 20050523, end: 20050720
  10. GASTER [Concomitant]
     Indication: GASTROINTESTINAL DISORDER
     Route: 048
     Dates: start: 20050523
  11. CARBOPLATIN [Concomitant]
     Dosage: 2 COURSES
     Dates: start: 20020901
  12. PACLITAXEL [Concomitant]
     Dosage: 2 COURSES
     Dates: start: 20020901
  13. GEMCITABINE [Concomitant]
     Dates: start: 20020901
  14. VINORELBINE TARTRATE [Concomitant]
     Dates: start: 20020901

REACTIONS (5)
  - ANOREXIA [None]
  - DYSGEUSIA [None]
  - NAUSEA [None]
  - PAROSMIA [None]
  - RASH [None]
